FAERS Safety Report 20756056 (Version 1)
Quarter: 2022Q2

REPORT INFORMATION
  Report Type: Spontaneous
  Country: US (occurrence: US)
  Receive Date: 20220427
  Receipt Date: 20220427
  Transmission Date: 20220721
  Serious: Yes (Other)
  Sender: FDA-Public Use
  Company Number: US-BRISTOL-MYERS SQUIBB COMPANY-2022-022218

PATIENT
  Age: 57 Year
  Sex: Male
  Weight: 127.01 kg

DRUGS (1)
  1. LENALIDOMIDE [Suspect]
     Active Substance: LENALIDOMIDE
     Indication: Thrombosis
     Route: 048
     Dates: start: 20181106

REACTIONS (3)
  - Thrombosis [Unknown]
  - Incorrect dose administered by device [Unknown]
  - Intentional product use issue [Unknown]
